FAERS Safety Report 20947413 (Version 1)
Quarter: 2022Q2

REPORT INFORMATION
  Report Type: Spontaneous
  Country: US (occurrence: US)
  Receive Date: 20220610
  Receipt Date: 20220610
  Transmission Date: 20220721
  Serious: Yes (Hospitalization)
  Sender: FDA-Public Use
  Company Number: US-BIOGEN-2022BI01130033

PATIENT
  Sex: Male

DRUGS (1)
  1. TECFIDERA [Suspect]
     Active Substance: DIMETHYL FUMARATE
     Indication: Product used for unknown indication
     Route: 065

REACTIONS (4)
  - Multiple sclerosis relapse [Unknown]
  - Loss of therapeutic response [Unknown]
  - Ocular icterus [Unknown]
  - Multiple sclerosis [Unknown]
